FAERS Safety Report 9155831 (Version 1)
Quarter: 2013Q1

REPORT INFORMATION
  Report Type: Spontaneous
  Country: JP (occurrence: JP)
  Receive Date: 20130311
  Receipt Date: 20130311
  Transmission Date: 20140127
  Serious: Yes (Other)
  Sender: FDA-Public Use
  Company Number: JP-WATSON-2013-03702

PATIENT
  Age: 14 Year
  Sex: 0

DRUGS (1)
  1. LEVETIRACETAM (UNKNOWN) [Suspect]
     Indication: LENNOX-GASTAUT SYNDROME
     Dosage: UNK, UNKNOWN
     Route: 065

REACTIONS (1)
  - Status epilepticus [Unknown]
